FAERS Safety Report 8779047 (Version 2)
Quarter: 2012Q4

REPORT INFORMATION
  Report Type: 
  Country: US (occurrence: US)
  Receive Date: 20120912
  Receipt Date: 20120918
  Transmission Date: 20130627
  Serious: Yes (Other)
  Sender: FDA-Public Use
  Company Number: US-PFIZER INC-2012223332

PATIENT
  Age: 50 Year
  Sex: Female
  Weight: 79.82 kg

DRUGS (33)
  1. CHANTIX [Suspect]
     Indication: SMOKING CESSATION THERAPY
     Dosage: 0.5 mg, 1x/day
     Route: 048
     Dates: start: 2010, end: 2010
  2. CHANTIX [Suspect]
     Dosage: 0.5 mg, 1x/day
     Route: 048
     Dates: start: 201110, end: 201110
  3. CHANTIX [Suspect]
     Dosage: 1 mg, 2x/day
     Route: 048
     Dates: start: 201110, end: 201110
  4. PLAVIX [Concomitant]
     Dosage: UNK
  5. VITAMIN B12 [Concomitant]
     Dosage: UNK
  6. MULTIVITAMINS [Concomitant]
     Dosage: UNK
  7. MULTIVITAMINS [Concomitant]
     Dosage: UNK
  8. CALCIUM [Concomitant]
     Dosage: UNK
  9. MOTRIN [Concomitant]
     Dosage: 800 mg, 3x/day
  10. GABAPENTIN [Concomitant]
     Dosage: 800 mg, 3x/day
  11. GABAPENTIN [Concomitant]
     Dosage: UNK
  12. LEVOTHROID [Concomitant]
     Dosage: 88 ug, 2x/day
  13. SIMVASTATIN [Concomitant]
     Dosage: 20 mg, 1x/day
  14. RANITIDINE [Concomitant]
     Indication: GASTRIC DISORDER
     Dosage: 300 mg, 2x/day
  15. RANITIDINE [Concomitant]
     Dosage: UNK
  16. COREG [Concomitant]
     Dosage: 12.5 mg, UNK
  17. SYMBICORT [Concomitant]
     Dosage: 160/4.5 UNK, UNK
  18. SYMBICORT [Concomitant]
     Dosage: UNK
  19. OXYCODONE [Concomitant]
     Dosage: 15 mg, 5x/day
  20. OXYCODONE [Concomitant]
     Dosage: UNK
  21. DOCUSATE [Concomitant]
     Dosage: UNK, 2x/day
  22. ASPIRIN [Concomitant]
     Dosage: 81 mg, 1x/day
  23. OMEGA 3 FISH OIL [Concomitant]
     Dosage: UNK
  24. BLACK COHOSH [Concomitant]
     Dosage: UNK
  25. NITROSTAT [Concomitant]
     Dosage: UNK
  26. COLACE [Concomitant]
     Dosage: UNK
  27. LUNESTA [Concomitant]
     Dosage: UNK
  28. PRAVACHOL [Concomitant]
     Dosage: UNK
  29. PROAIR [Concomitant]
     Dosage: UNK
  30. ZOFRAN [Concomitant]
     Dosage: UNK, as needed
  31. CITALOPRAM [Concomitant]
     Dosage: UNK
  32. ACCUNEB [Concomitant]
     Dosage: UNK
  33. LORAZEPAM [Concomitant]
     Dosage: UNK

REACTIONS (5)
  - Back disorder [Unknown]
  - Tachycardia [Unknown]
  - Malaise [Recovered/Resolved]
  - Nausea [Recovered/Resolved]
  - Vomiting [Recovered/Resolved]
